FAERS Safety Report 24770804 (Version 1)
Quarter: 2024Q4

REPORT INFORMATION
  Report Type: Spontaneous
  Country: US (occurrence: US)
  Receive Date: 20241224
  Receipt Date: 20241224
  Transmission Date: 20250115
  Serious: No
  Sender: GE HEALTHCARE
  Company Number: US-GE HEALTHCARE-2024CSU013010

PATIENT
  Age: 52 Year
  Sex: Female
  Weight: 82.993 kg

DRUGS (1)
  1. OMNIPAQUE [Suspect]
     Active Substance: IOHEXOL
     Indication: Computerised tomogram
     Dosage: 100 ML, TOTAL
     Route: 065
     Dates: start: 20241106, end: 20241106

REACTIONS (5)
  - Throat tightness [Recovering/Resolving]
  - Pharyngeal swelling [Recovering/Resolving]
  - Chest pain [Recovering/Resolving]
  - Throat irritation [Recovering/Resolving]
  - Nausea [Recovering/Resolving]

NARRATIVE: CASE EVENT DATE: 20241106
